FAERS Safety Report 9006768 (Version 3)
Quarter: 2013Q1

REPORT INFORMATION
  Report Type: Spontaneous
  Country: AU (occurrence: AU)
  Receive Date: 20130110
  Receipt Date: 20130206
  Transmission Date: 20140127
  Serious: Yes (Other)
  Sender: FDA-Public Use
  Company Number: PHHY2013AU002147

PATIENT
  Age: 50 Year
  Sex: Male

DRUGS (1)
  1. GILENYA [Suspect]
     Indication: MULTIPLE SCLEROSIS
     Dosage: 0.5 MG, QD
     Route: 048
     Dates: start: 20121215

REACTIONS (11)
  - Uveitis [Recovering/Resolving]
  - Blindness unilateral [Unknown]
  - Intraocular pressure test abnormal [Unknown]
  - Ocular hyperaemia [Unknown]
  - Eye pain [Recovered/Resolved]
  - Eye swelling [Recovering/Resolving]
  - Eye inflammation [Recovering/Resolving]
  - Eye injury [Recovering/Resolving]
  - Vision blurred [Recovering/Resolving]
  - Visual acuity reduced [Unknown]
  - Eye irritation [Unknown]
